FAERS Safety Report 4394131-2 (Version None)
Quarter: 2004Q3

REPORT INFORMATION
  Report Type: 
  Country: None (occurrence: None)
  Receive Date: 20040712
  Receipt Date: 20030424
  Transmission Date: 20050211
  Serious: Yes (Other)
  Sender: FDA-Public Use
  Company Number: PHBS2003NO04357

PATIENT
  Age: 56 Year
  Sex: Female

DRUGS (1)
  1. NORETHINDRONE AND ETHINYL ESTRADIOL [Suspect]
     Dates: start: 20030124

REACTIONS (3)
  - JOINT SWELLING [None]
  - NAIL DISCOLOURATION [None]
  - NAUSEA [None]
